FAERS Safety Report 21816989 (Version 1)
Quarter: 2023Q1

REPORT INFORMATION
  Report Type: Report from Study
  Country: US (occurrence: US)
  Receive Date: 20230104
  Receipt Date: 20230104
  Transmission Date: 20230418
  Serious: Yes (Hospitalization, Other)
  Sender: FDA-Public Use
  Company Number: US-ABBVIE-4215343

PATIENT
  Sex: Female

DRUGS (4)
  1. RINVOQ [Suspect]
     Active Substance: UPADACITINIB
     Indication: Product used for unknown indication
     Route: 048
  2. ENBREL [Suspect]
     Active Substance: ETANERCEPT
     Indication: Product used for unknown indication
     Route: 065
  3. COSENTYX [Suspect]
     Active Substance: SECUKINUMAB
     Indication: Product used for unknown indication
     Route: 065
  4. ORENCIA [Suspect]
     Active Substance: ABATACEPT
     Indication: Product used for unknown indication
     Route: 065

REACTIONS (9)
  - Adverse drug reaction [Unknown]
  - Loss of personal independence in daily activities [Unknown]
  - Hypersomnia [Unknown]
  - Disturbance in attention [Unknown]
  - Diverticulitis [Unknown]
  - Memory impairment [Unknown]
  - Pancreatitis [Unknown]
  - Anaphylactic shock [Unknown]
  - Herpes zoster [Unknown]
